FAERS Safety Report 8452185-8 (Version None)
Quarter: 2012Q2

REPORT INFORMATION
  Report Type: 
  Country: None (occurrence: None)
  Receive Date: 20120620
  Receipt Date: 20120427
  Transmission Date: 20120825
  Serious: No
  Sender: FDA-Public Use
  Company Number: US-VERTEX PHARMACEUTICALS INC.-AE-2012-004728

PATIENT
  Sex: Male
  Weight: 69.462 kg

DRUGS (3)
  1. INCIVEK [Suspect]
     Indication: HEPATITIS C
     Route: 048
     Dates: start: 20120325
  2. PEGASYS [Concomitant]
     Indication: HEPATITIS C
     Route: 058
     Dates: start: 20120325
  3. RIBAVIRIN [Concomitant]
     Indication: HEPATITIS C
     Route: 048
     Dates: start: 20120325

REACTIONS (9)
  - HEADACHE [None]
  - HAEMORRHOIDS [None]
  - RASH [None]
  - PLATELET COUNT DECREASED [None]
  - DEPRESSION [None]
  - FATIGUE [None]
  - NAUSEA [None]
  - FAECES PALE [None]
  - OCULAR ICTERUS [None]
